FAERS Safety Report 5635941-0 (Version None)
Quarter: 2008Q1

REPORT INFORMATION
  Report Type: 
  Country: None (occurrence: None)
  Receive Date: 20080224
  Receipt Date: 20080218
  Transmission Date: 20080703
  Serious: Yes (Other)
  Sender: FDA-Public Use
  Company Number: PHBS2007ES19309

PATIENT
  Age: 58 Year
  Sex: Female

DRUGS (4)
  1. CO-DIOVAN FORTE [Suspect]
     Indication: HYPERTENSION
     Dosage: VALS 160/ HCT 25 MG/DAY
     Route: 048
  2. IBUPROFEN [Concomitant]
     Indication: BONE CYST
     Dosage: 600 MG, PRN
  3. DICORVIN [Concomitant]
     Indication: BONE CYST
     Dosage: UNK, PRN
  4. MOTILIUM [Concomitant]
     Indication: NAUSEA
     Dosage: UNK, PRN

REACTIONS (6)
  - ABDOMINAL PAIN [None]
  - DRUG HYPERSENSITIVITY [None]
  - ERYTHEMA [None]
  - NAUSEA [None]
  - TONGUE GEOGRAPHIC [None]
  - VOMITING [None]
